FAERS Safety Report 8785033 (Version 4)
Quarter: 2012Q4

REPORT INFORMATION
  Report Type: 
  Country: SK (occurrence: SK)
  Receive Date: 20120914
  Receipt Date: 20121015
  Transmission Date: 20130627
  Serious: Yes (Other)
  Sender: FDA-Public Use
  Company Number: SK-JNJFOC-20120905096

PATIENT
  Age: 45 Year
  Sex: Female

DRUGS (2)
  1. IBUPROFEN [Suspect]
     Indication: HEADACHE
     Route: 065
     Dates: start: 2006, end: 2010
  2. TIANEPTINE [Suspect]
     Indication: PRODUCT USED FOR UNKNOWN INDICATION

REACTIONS (4)
  - Drug dependence [Recovered/Resolved]
  - Treatment noncompliance [None]
  - Incorrect dose administered [None]
  - Drug dependence [None]
